FAERS Safety Report 19979522 (Version 1)
Quarter: 2021Q4

REPORT INFORMATION
  Report Type: Report from Study
  Country: CA (occurrence: CA)
  Receive Date: 20211021
  Receipt Date: 20211021
  Transmission Date: 20220303
  Serious: Yes (Other)
  Sender: FDA-Public Use
  Company Number: 2021A776058

PATIENT
  Sex: Male

DRUGS (2)
  1. LYNPARZA [Interacting]
     Active Substance: OLAPARIB
     Indication: Prostate cancer
     Route: 048
     Dates: start: 20210219
  2. DILTIAZEM [Interacting]
     Active Substance: DILTIAZEM
     Indication: Cardiac discomfort
     Route: 065
     Dates: start: 202109

REACTIONS (1)
  - Drug interaction [Unknown]
